FAERS Safety Report 6082643-5 (Version None)
Quarter: 2009Q1

REPORT INFORMATION
  Report Type: 
  Country: None (occurrence: None)
  Receive Date: 20090218
  Receipt Date: 20090206
  Transmission Date: 20090719
  Serious: Yes (Death)
  Sender: FDA-Public Use
  Company Number: FR-PFIZER INC-2009162581

PATIENT

DRUGS (12)
  1. VFEND [Suspect]
     Indication: CANDIDIASIS
     Dosage: 400 MG, 2X/DAY
     Dates: start: 20080727
  2. FUROSEMIDE [Suspect]
  3. PROPRANOLOL HYDROCHLORIDE [Concomitant]
  4. SPIRONOLACTONE [Concomitant]
  5. PANTOPRAZOL [Concomitant]
  6. GANCICLOVIR [Concomitant]
  7. TACROLIMUS [Concomitant]
  8. LINEZOLID [Concomitant]
     Dates: start: 20080722
  9. IMIPENEM AND CILASTATIN SODIUM [Concomitant]
     Dates: start: 20080722
  10. LEVOFLOXACIN [Concomitant]
     Dates: start: 20080722
  11. DRUG, UNSPECIFIED [Concomitant]
  12. NOREPINEPHRINE BITARTRATE [Concomitant]
     Dates: end: 20080715

REACTIONS (1)
  - HEPATIC NECROSIS [None]
